FAERS Safety Report 12179749 (Version 1)
Quarter: 2016Q1

REPORT INFORMATION
  Report Type: Report from Study
  Country: PA (occurrence: PA)
  Receive Date: 20160314
  Receipt Date: 20160314
  Transmission Date: 20160526
  Serious: Yes (Hospitalization, Other)
  Sender: FDA-Public Use
  Company Number: PHHY2015PA141018

PATIENT
  Age: 9 Year
  Sex: Female
  Weight: 25.4 kg

DRUGS (2)
  1. HYDROXYUREA. [Concomitant]
     Active Substance: HYDROXYUREA
     Indication: PRODUCT USED FOR UNKNOWN INDICATION
     Dosage: 500 MG, QD
     Route: 048
  2. EXJADE [Suspect]
     Active Substance: DEFERASIROX
     Indication: SICKLE CELL ANAEMIA
     Dosage: 20 MG/KG, QD (500 MG)
     Route: 048

REACTIONS (6)
  - Abdominal pain [Recovered/Resolved]
  - Ocular icterus [Recovered/Resolved]
  - Cholelithiasis [Unknown]
  - Asthenia [Recovering/Resolving]
  - Cerebrovascular disorder [Unknown]
  - Abasia [Not Recovered/Not Resolved]

NARRATIVE: CASE EVENT DATE: 201508
